FAERS Safety Report 4810506-9 (Version None)
Quarter: 2005Q4

REPORT INFORMATION
  Report Type: 
  Country: None (occurrence: None)
  Receive Date: 20051025
  Receipt Date: 20051025
  Transmission Date: 20060501
  Serious: Yes (Other)
  Sender: FDA-Public Use
  Company Number: None

PATIENT
  Age: 54 Year
  Sex: Male
  Weight: 111.1 kg

DRUGS (14)
  1. IMDUR [Suspect]
  2. VITAMIN B COMPLEX/VITAMIN C CAP [Concomitant]
  3. PROPOXYPHENE N 100/APAP [Concomitant]
  4. SIMVASTATIN [Concomitant]
  5. ASPIRIN [Concomitant]
  6. FLUNISOLIDE [Concomitant]
  7. ISOSORBIDE MONONITRATE [Concomitant]
  8. LISINOPRIL [Concomitant]
  9. METOPROLOL TARTRATE [Concomitant]
  10. ADALAT CC [Concomitant]
  11. OMEPRAZOLE [Concomitant]
  12. SODIUM CHLORIDE [Concomitant]
  13. DIVALPROEX SODIUM [Concomitant]
  14. HYPROMELLOSE [Concomitant]

REACTIONS (1)
  - HEADACHE [None]
